FAERS Safety Report 4362532-4 (Version None)
Quarter: 2004Q2

REPORT INFORMATION
  Report Type: 
  Country: None (occurrence: None)
  Receive Date: 20040517
  Receipt Date: 20040223
  Transmission Date: 20050107
  Serious: Yes (Hospitalization)
  Sender: FDA-Public Use
  Company Number: S04-USA-00836-01

PATIENT
  Age: 76 Year
  Sex: Female

DRUGS (4)
  1. NAMENDA [Suspect]
     Indication: DEMENTIA
     Dosage: UNK
     Route: 065
     Dates: end: 20040218
  2. MEMANTINE HCL [Suspect]
     Indication: DEMENTIA
     Dosage: UNK
     Route: 065
     Dates: start: 20030901
  3. VALPROATE SODIUM [Concomitant]
  4. ARICEPT [Concomitant]

REACTIONS (2)
  - FOOT FRACTURE [None]
  - HYPERSOMNIA [None]
